FAERS Safety Report 10377593 (Version 24)
Quarter: 2016Q2

REPORT INFORMATION
  Report Type: Report from Study
  Country: US (occurrence: US)
  Receive Date: 20140812
  Receipt Date: 20160623
  Transmission Date: 20160815
  Serious: Yes (Hospitalization, Other)
  Sender: FDA-Public Use
  Company Number: US-ALEXION-A201403029

PATIENT
  Sex: Male

DRUGS (7)
  1. ASPIRIN                            /00002701/ [Concomitant]
     Active Substance: ASPIRIN
     Indication: PRODUCT USED FOR UNKNOWN INDICATION
     Route: 065
  2. OXYCODONE [Concomitant]
     Active Substance: OXYCODONE
     Indication: PRODUCT USED FOR UNKNOWN INDICATION
     Route: 065
  3. SOLIRIS [Suspect]
     Active Substance: ECULIZUMAB
     Dosage: UNK
     Route: 042
     Dates: end: 20150203
  4. SOLIRIS [Suspect]
     Active Substance: ECULIZUMAB
     Indication: HAEMOLYTIC URAEMIC SYNDROME
     Dosage: UNK
     Route: 042
     Dates: end: 20150203
  5. RITUXAN [Concomitant]
     Active Substance: RITUXIMAB
     Indication: PRODUCT USED FOR UNKNOWN INDICATION
     Route: 065
  6. LISINOPRIL. [Concomitant]
     Active Substance: LISINOPRIL
     Indication: PRODUCT USED FOR UNKNOWN INDICATION
     Route: 065
  7. AMOXICILLIN. [Concomitant]
     Active Substance: AMOXICILLIN
     Indication: PRODUCT USED FOR UNKNOWN INDICATION
     Dosage: UNK
     Route: 065
     Dates: start: 20140729

REACTIONS (53)
  - Pleural effusion [Not Recovered/Not Resolved]
  - Infection [Recovering/Resolving]
  - Oxygen saturation decreased [Recovering/Resolving]
  - Vomiting [Unknown]
  - Blood lactate dehydrogenase increased [Unknown]
  - Blood creatinine increased [Unknown]
  - Pyrexia [Recovered/Resolved]
  - Swelling [Unknown]
  - Chest pain [Unknown]
  - Anaemia [Recovering/Resolving]
  - Blood creatinine abnormal [Unknown]
  - Decreased appetite [Recovering/Resolving]
  - Back pain [Not Recovered/Not Resolved]
  - Arthritis [Unknown]
  - Device related infection [Unknown]
  - Renal disorder [Not Recovered/Not Resolved]
  - Dysuria [Unknown]
  - Hypotension [Unknown]
  - Osteonecrosis [Not Recovered/Not Resolved]
  - Pneumonia [Not Recovered/Not Resolved]
  - Night sweats [Unknown]
  - Asthenia [Unknown]
  - Haematocrit decreased [Unknown]
  - Pain [Unknown]
  - Infusion related reaction [Unknown]
  - Depression [Not Recovered/Not Resolved]
  - Musculoskeletal chest pain [Unknown]
  - Abscess limb [Unknown]
  - Pyrexia [Unknown]
  - Blood culture positive [Unknown]
  - Hypertension [Recovering/Resolving]
  - Weight decreased [Recovering/Resolving]
  - Sleep disorder [Unknown]
  - Arthralgia [Not Recovered/Not Resolved]
  - Nasopharyngitis [Unknown]
  - Haemoglobin abnormal [Unknown]
  - Arthralgia [Unknown]
  - Hypertension [Not Recovered/Not Resolved]
  - Bone pain [Unknown]
  - Sepsis [Unknown]
  - Pyrexia [Recovered/Resolved]
  - Erythema [Unknown]
  - Vision blurred [Unknown]
  - Back pain [Not Recovered/Not Resolved]
  - Muscle hypertrophy [Unknown]
  - Thrombotic thrombocytopenic purpura [Unknown]
  - Haemoglobin decreased [Unknown]
  - Pulmonary mass [Unknown]
  - Renal impairment [Not Recovered/Not Resolved]
  - Platelet count abnormal [Unknown]
  - Asthenia [Unknown]
  - Headache [Unknown]
  - Movement disorder [Unknown]

NARRATIVE: CASE EVENT DATE: 20140410
